FAERS Safety Report 6183348-2 (Version None)
Quarter: 2009Q2

REPORT INFORMATION
  Report Type: 
  Country: None (occurrence: None)
  Receive Date: 20090506
  Receipt Date: 20090421
  Transmission Date: 20091009
  Serious: Yes (Other)
  Sender: FDA-Public Use
  Company Number: 2009S1007003

PATIENT
  Age: 63 Year
  Sex: Male

DRUGS (2)
  1. MIRTAZAPINE [Suspect]
     Indication: DEPRESSION
     Dosage: 30 MG, ORAL
     Route: 048
     Dates: start: 20090325, end: 20090403
  2. RISPERIDONE [Concomitant]

REACTIONS (2)
  - HOT FLUSH [None]
  - PRURITUS GENERALISED [None]
